FAERS Safety Report 6222660-5 (Version None)
Quarter: 2009Q2

REPORT INFORMATION
  Report Type: 
  Country: None (occurrence: None)
  Receive Date: 20090611
  Receipt Date: 20090529
  Transmission Date: 20091009
  Serious: Yes (Life-Threatening, Hospitalization)
  Sender: FDA-Public Use
  Company Number: LB-ELI_LILLY_AND_COMPANY-LB200906000042

PATIENT
  Age: 58 Year
  Sex: Male

DRUGS (3)
  1. FLUOXETINE HYDROCHLORIDE [Suspect]
     Indication: OBSESSIVE-COMPULSIVE DISORDER
     Dosage: 20 MG, UNK
     Route: 048
  2. OLANZAPINE [Suspect]
     Indication: OBSESSIVE-COMPULSIVE DISORDER
     Dosage: 10 MG, UNK
     Route: 048
  3. SINEMET [Concomitant]

REACTIONS (1)
  - STEVENS-JOHNSON SYNDROME [None]
